FAERS Safety Report 19193805 (Version 1)
Quarter: 2021Q2

REPORT INFORMATION
  Report Type: Spontaneous
  Country: US (occurrence: US)
  Receive Date: 20210429
  Receipt Date: 20210429
  Transmission Date: 20210717
  Serious: Yes (Death)
  Sender: FDA-Public Use
  Company Number: US-PFIZER INC-2021475859

PATIENT
  Age: 13 Year
  Sex: Male

DRUGS (16)
  1. ACYCLOVIR [ACICLOVIR] [Suspect]
     Active Substance: ACYCLOVIR
     Indication: MENINGITIS
     Dosage: UNK
  2. AMPHOTERICIN B. [Suspect]
     Active Substance: AMPHOTERICIN B
     Indication: MENINGOENCEPHALITIS AMOEBIC
     Dosage: UNK
  3. FLUCONAZOLE. [Suspect]
     Active Substance: FLUCONAZOLE
     Indication: MENINGOENCEPHALITIS AMOEBIC
     Dosage: UNK
  4. RIFAMPIN. [Suspect]
     Active Substance: RIFAMPIN
     Indication: MENINGOENCEPHALITIS AMOEBIC
     Dosage: UNK
  5. VANCOMYCIN HCL [Suspect]
     Active Substance: VANCOMYCIN HYDROCHLORIDE
     Indication: MENINGITIS
     Dosage: UNK
  6. RIFAMPIN. [Suspect]
     Active Substance: RIFAMPIN
     Indication: NAEGLERIA INFECTION
  7. DEXAMETHASONE. [Suspect]
     Active Substance: DEXAMETHASONE
     Indication: MENINGOENCEPHALITIS AMOEBIC
     Dosage: UNK
  8. AZITHROMYCIN ANHYDROUS. [Suspect]
     Active Substance: AZITHROMYCIN ANHYDROUS
     Indication: MENINGOENCEPHALITIS AMOEBIC
     Dosage: UNK
  9. MILTEFOSINE [Suspect]
     Active Substance: MILTEFOSINE
     Indication: NAEGLERIA INFECTION
  10. AZITHROMYCIN ANHYDROUS. [Suspect]
     Active Substance: AZITHROMYCIN ANHYDROUS
     Indication: NAEGLERIA INFECTION
  11. MILTEFOSINE [Suspect]
     Active Substance: MILTEFOSINE
     Indication: MENINGOENCEPHALITIS AMOEBIC
     Dosage: UNK
  12. AMPHOTERICIN B. [Suspect]
     Active Substance: AMPHOTERICIN B
     Indication: NAEGLERIA INFECTION
  13. DEXAMETHASONE. [Suspect]
     Active Substance: DEXAMETHASONE
     Indication: NAEGLERIA INFECTION
  14. FLUCONAZOLE. [Suspect]
     Active Substance: FLUCONAZOLE
     Indication: NAEGLERIA INFECTION
  15. CEFTRIAXONE. [Suspect]
     Active Substance: CEFTRIAXONE
     Indication: MENINGITIS
     Dosage: UNK
  16. CEFTRIAXONE. [Suspect]
     Active Substance: CEFTRIAXONE
     Indication: EVIDENCE BASED TREATMENT

REACTIONS (1)
  - Drug ineffective [Fatal]
